FAERS Safety Report 5852339-0 (Version None)
Quarter: 2008Q3

REPORT INFORMATION
  Report Type: 
  Country: None (occurrence: None)
  Receive Date: 20080821
  Receipt Date: 20080811
  Transmission Date: 20090109
  Serious: Yes (Hospitalization)
  Sender: FDA-Public Use
  Company Number: CZ-BAXTER-2008BH008568

PATIENT
  Age: 31 Year
  Sex: Female

DRUGS (7)
  1. GAMMAGARD LIQUID [Suspect]
     Indication: IMMUNODEFICIENCY COMMON VARIABLE
     Route: 042
     Dates: start: 20080718, end: 20080718
  2. GAMMAGARD LIQUID [Suspect]
     Dosage: DOSE UNIT:UNKNOWN
     Route: 042
  3. SYMBICORT TURBUHALER ^DRACO^ [Concomitant]
     Dosage: DOSE UNIT:UNKNOWN
     Route: 065
  4. BEROTEC [Concomitant]
     Dosage: DOSE UNIT:UNKNOWN
     Route: 065
  5. BISEPTOL [Concomitant]
     Dosage: DOSE UNIT:UNKNOWN
     Route: 065
  6. AUGMENTIN [Concomitant]
  7. GAMMAGARD LIQUID [Concomitant]
     Dates: start: 20080707, end: 20080707

REACTIONS (7)
  - ABDOMINAL PAIN [None]
  - DYSPNOEA [None]
  - GALLBLADDER DISORDER [None]
  - HEPATIC FUNCTION ABNORMAL [None]
  - NAUSEA [None]
  - PYREXIA [None]
  - VOMITING [None]
